FAERS Safety Report 6978391-7 (Version None)
Quarter: 2010Q3

REPORT INFORMATION
  Report Type: 
  Country: None (occurrence: None)
  Receive Date: 20100913
  Receipt Date: 20100907
  Transmission Date: 20110219
  Serious: Yes (Hospitalization)
  Sender: FDA-Public Use
  Company Number: US-BRISTOL-MYERS SQUIBB COMPANY-15274855

PATIENT
  Age: 72 Year
  Sex: Female

DRUGS (6)
  1. KENALOG [Suspect]
     Dosage: 24 HOURS AFTER THE INJECTION
  2. VICODIN [Concomitant]
  3. PEPCID [Concomitant]
     Indication: GASTROOESOPHAGEAL REFLUX DISEASE
  4. WELLBUTRIN [Concomitant]
  5. FORTICAL [Concomitant]
     Indication: OSTEOPENIA
  6. LAMICTAL [Concomitant]

REACTIONS (1)
  - HAEMATOCHEZIA [None]
